FAERS Safety Report 8584646-5 (Version None)
Quarter: 2012Q3

REPORT INFORMATION
  Report Type: 
  Country: None (occurrence: None)
  Receive Date: 20120730
  Receipt Date: 20120718
  Transmission Date: 20120928
  Serious: Yes (Death, Life-Threatening, Hospitalization)
  Sender: FDA-Public Use
  Company Number: DSA_56281_2012

PATIENT
  Age: 40 Year
  Sex: Female

DRUGS (5)
  1. LAMOTRIGINE [Suspect]
     Indication: PSYCHOTIC DISORDER
     Dosage: 100 MG QD
  2. FERROUS SULFATE TAB [Concomitant]
  3. MIRTAZAPINE [Suspect]
     Indication: PSYCHOTIC DISORDER
     Dosage: 15 MG QD
  4. VENLAFAXINE [Suspect]
     Indication: PSYCHOTIC DISORDER
     Dosage: 75 MG QD
  5. QUETIAPINE [Suspect]
     Indication: PSYCHOTIC DISORDER
     Dosage: 300 MG QD

REACTIONS (29)
  - ENTEROCOCCUS TEST POSITIVE [None]
  - AGRANULOCYTOSIS [None]
  - PHARYNGITIS [None]
  - PRODUCTIVE COUGH [None]
  - BLOOD BICARBONATE DECREASED [None]
  - LUNG INFECTION [None]
  - ASPARTATE AMINOTRANSFERASE INCREASED [None]
  - BLOOD PH DECREASED [None]
  - UNRESPONSIVE TO STIMULI [None]
  - CELLULITIS [None]
  - RENAL FAILURE ACUTE [None]
  - BLOOD LACTIC ACID DECREASED [None]
  - LUNG CONSOLIDATION [None]
  - LUNG NEOPLASM [None]
  - FEBRILE NEUTROPENIA [None]
  - GENERAL PHYSICAL HEALTH DETERIORATION [None]
  - ORAL CANDIDIASIS [None]
  - CONVULSION [None]
  - ALANINE AMINOTRANSFERASE INCREASED [None]
  - HYPOTENSION [None]
  - ASPERGILLUS TEST POSITIVE [None]
  - SEPTIC SHOCK [None]
  - PLATELET COUNT DECREASED [None]
  - BLOOD BILIRUBIN INCREASED [None]
  - BLOOD BILIRUBIN UNCONJUGATED INCREASED [None]
  - MULTI-ORGAN DISORDER [None]
  - CHILLS [None]
  - CARDIAC ARREST [None]
  - HAEMODIALYSIS [None]
